FAERS Safety Report 6443144-5 (Version None)
Quarter: 2009Q4

REPORT INFORMATION
  Report Type: 
  Country: None (occurrence: None)
  Receive Date: 20091117
  Receipt Date: 20091111
  Transmission Date: 20100525
  Serious: Yes (Other)
  Sender: FDA-Public Use
  Company Number: A0817086A

PATIENT
  Sex: Female
  Weight: 55 kg

DRUGS (5)
  1. SERETIDE [Suspect]
     Indication: ASTHMA
     Dosage: 1PUFF TWICE PER DAY
     Route: 055
     Dates: start: 20090930
  2. ARTROLIVE [Concomitant]
     Dosage: 2TAB PER DAY
     Dates: start: 20091110
  3. LEVOTHYROXINE SODIUM [Concomitant]
     Dosage: 1TAB PER DAY
     Dates: start: 20010101
  4. AEROLIN [Concomitant]
     Dosage: 1PUFF AS REQUIRED
  5. PANTOPRAZOLE [Concomitant]
     Dosage: 1TAB PER DAY

REACTIONS (4)
  - ASTHMATIC CRISIS [None]
  - DRUG INEFFECTIVE [None]
  - DYSPNOEA [None]
  - PRODUCT QUALITY ISSUE [None]
